FAERS Safety Report 9356773 (Version 1)
Quarter: 2013Q2

REPORT INFORMATION
  Report Type: Spontaneous
  Country: US (occurrence: US)
  Receive Date: 20130619
  Receipt Date: 20130619
  Transmission Date: 20140414
  Serious: Yes (Hospitalization, Other)
  Sender: FDA-Public Use
  Company Number: US-UCBSA-088682

PATIENT
  Age: 0 None
  Sex: Male
  Weight: 2.4 kg

DRUGS (1)
  1. KEPPRA [Suspect]
     Indication: CONVULSION
     Route: 064
     Dates: start: 2012, end: 20130405

REACTIONS (5)
  - Premature baby [Unknown]
  - Apnoea neonatal [Recovered/Resolved]
  - Low birth weight baby [Unknown]
  - Flatulence [Not Recovered/Not Resolved]
  - Foetal exposure during pregnancy [Recovered/Resolved]
